FAERS Safety Report 9087983 (Version 7)
Quarter: 2014Q4

REPORT INFORMATION
  Report Type: Spontaneous
  Country: US (occurrence: US)
  Receive Date: 20130201
  Receipt Date: 20141105
  Transmission Date: 20150529
  Serious: Yes (Hospitalization, Disabling, Other)
  Sender: FDA-Public Use
  Company Number: US-009507513-1302USA000354

PATIENT
  Sex: Male

DRUGS (3)
  1. PROZAC [Concomitant]
     Active Substance: FLUOXETINE HYDROCHLORIDE
     Indication: ANXIETY
     Dosage: UNK
     Dates: start: 1990, end: 2008
  2. PROZAC [Concomitant]
     Active Substance: FLUOXETINE HYDROCHLORIDE
     Indication: DEPRESSION
  3. PROPECIA [Suspect]
     Active Substance: FINASTERIDE
     Indication: ANDROGENETIC ALOPECIA
     Dosage: 1 MG, QD
     Route: 048
     Dates: start: 199904, end: 20040213

REACTIONS (46)
  - Sinusitis [Unknown]
  - Skin papilloma [Unknown]
  - Palpitations [Recovered/Resolved]
  - Flank pain [Unknown]
  - Pruritus [Unknown]
  - Libido decreased [Unknown]
  - Attention deficit/hyperactivity disorder [Unknown]
  - Testicular pain [Unknown]
  - Epididymal cyst [Unknown]
  - Back disorder [Unknown]
  - Chest discomfort [Recovered/Resolved]
  - Nausea [Unknown]
  - Personality disorder [Unknown]
  - Neck injury [Unknown]
  - Back injury [Unknown]
  - Road traffic accident [Unknown]
  - Presyncope [Unknown]
  - Molluscum contagiosum [Unknown]
  - Contusion [Unknown]
  - Contusion [Unknown]
  - Bipolar disorder [Unknown]
  - Spermatocele [Unknown]
  - Mental disability [Not Recovered/Not Resolved]
  - Bipolar I disorder [Unknown]
  - Chest pain [Recovered/Resolved]
  - Dyspnoea [Recovered/Resolved]
  - Dysuria [Unknown]
  - Injury [Unknown]
  - Anxiety [Unknown]
  - Panic disorder without agoraphobia [Unknown]
  - Substance use [Unknown]
  - Varicocele [Unknown]
  - Sexual dysfunction [Not Recovered/Not Resolved]
  - Alcohol abuse [Unknown]
  - Cognitive disorder [Not Recovered/Not Resolved]
  - Drug abuse [Unknown]
  - Factitious disorder [Unknown]
  - Drug dependence [Unknown]
  - Drug abuse [Unknown]
  - Major depression [Not Recovered/Not Resolved]
  - Obsessive-compulsive disorder [Unknown]
  - Drug ineffective [Unknown]
  - Testicular pain [Not Recovered/Not Resolved]
  - Erectile dysfunction [Unknown]
  - Suicidal ideation [Unknown]
  - Substance abuse [Unknown]

NARRATIVE: CASE EVENT DATE: 19990426
